FAERS Safety Report 5381811-5 (Version None)
Quarter: 2007Q3

REPORT INFORMATION
  Report Type: 
  Country: None (occurrence: None)
  Receive Date: 20070709
  Receipt Date: 20070702
  Transmission Date: 20080115
  Serious: Yes (Hospitalization)
  Sender: FDA-Public Use
  Company Number: US-AMGEN-STX227755

PATIENT
  Sex: Male

DRUGS (7)
  1. ENBREL [Suspect]
     Indication: RHEUMATOID ARTHRITIS
     Route: 058
  2. VICODIN [Concomitant]
     Dates: start: 20050101
  3. BENICAR [Concomitant]
     Dates: start: 20060101
  4. LIPITOR [Concomitant]
     Dates: start: 20050101
  5. HYDROCHLOROTHIAZIDE [Concomitant]
     Dates: start: 20050101
  6. PRILOSEC [Concomitant]
     Dates: start: 20050101
  7. PROSCAR [Concomitant]
     Dates: start: 20040101

REACTIONS (5)
  - ANAEMIA [None]
  - FOOT OPERATION [None]
  - LEUKOPENIA [None]
  - PLATELET COUNT DECREASED [None]
  - TENDON OPERATION [None]
